FAERS Safety Report 16395072 (Version 3)
Quarter: 2019Q2

REPORT INFORMATION
  Report Type: Spontaneous
  Country: US (occurrence: US)
  Receive Date: 20190605
  Receipt Date: 20190627
  Transmission Date: 20190711
  Serious: Yes (Other)
  Sender: FDA-Public Use
  Company Number: US-BAYER-2019-108883

PATIENT
  Age: 28 Year
  Sex: Female
  Weight: 61.22 kg

DRUGS (2)
  1. MIRENA [Suspect]
     Active Substance: LEVONORGESTREL
     Indication: CONTRACEPTION
  2. MIRENA [Suspect]
     Active Substance: LEVONORGESTREL
     Indication: CONTRACEPTION
     Dosage: 20 MCG/24HR, CONT
     Route: 015
     Dates: start: 201703

REACTIONS (6)
  - Dyspareunia [None]
  - Patient dissatisfaction with device [None]
  - Bartholin^s cyst [None]
  - Device dislocation [Not Recovered/Not Resolved]
  - Coital bleeding [None]
  - Menstruation irregular [None]

NARRATIVE: CASE EVENT DATE: 20190520
